FAERS Safety Report 7282566-X (Version None)
Quarter: 2011Q1

REPORT INFORMATION
  Report Type: 
  Country: None (occurrence: None)
  Receive Date: 20110209
  Receipt Date: 20110204
  Transmission Date: 20110831
  Serious: No
  Sender: FDA-Public Use
  Company Number: US-PFIZER INC-2011026278

PATIENT
  Sex: Female
  Weight: 63.492 kg

DRUGS (7)
  1. ATENOLOL [Concomitant]
     Indication: HYPERTENSION
     Dosage: UNK
  2. VESICARE [Concomitant]
     Indication: RENAL DISORDER
     Dosage: UNK
  3. EFFEXOR XR [Suspect]
     Indication: DEPRESSION
     Dosage: UNK, DAILY
     Route: 048
     Dates: start: 20100401, end: 20100801
  4. CLONAZEPAM [Concomitant]
     Indication: DEPRESSION
     Dosage: UNK
  5. LOVASTATIN [Concomitant]
     Indication: BLOOD CHOLESTEROL INCREASED
     Dosage: UNK
  6. CYMBALTA [Concomitant]
     Indication: DEPRESSION
     Dosage: UNK
  7. VESICARE [Concomitant]
     Indication: BLADDER DISORDER

REACTIONS (1)
  - DRUG INEFFECTIVE [None]
